FAERS Safety Report 25300771 (Version 3)
Quarter: 2025Q2

REPORT INFORMATION
  Report Type: Spontaneous
  Country: JP (occurrence: JP)
  Receive Date: 20250512
  Receipt Date: 20250616
  Transmission Date: 20250717
  Serious: Yes (Other)
  Sender: PFIZER
  Company Number: JP-PFIZER INC-202500063086

PATIENT
  Age: 7 Decade
  Sex: Female

DRUGS (7)
  1. ELREXFIO [Suspect]
     Active Substance: ELRANATAMAB-BCMM
     Indication: Plasma cell myeloma
     Dosage: 12 MG, FIRST DOSE
     Route: 058
     Dates: start: 20250312, end: 20250312
  2. ELREXFIO [Suspect]
     Active Substance: ELRANATAMAB-BCMM
     Dosage: 32 MG, 1X/DAY
     Route: 058
     Dates: start: 20250326, end: 20250326
  3. ELREXFIO [Suspect]
     Active Substance: ELRANATAMAB-BCMM
     Dosage: 76 MG, 1X/DAY
     Route: 058
     Dates: start: 20250409, end: 20250409
  4. AMLODIPINE [Concomitant]
     Active Substance: AMLODIPINE BESYLATE
     Indication: Hypertension
     Dosage: 2.5 MG, 1X/DAY, AFTER BREAKFAST
  5. CELECOXIB [Concomitant]
     Active Substance: CELECOXIB
     Indication: Back pain
     Dosage: 100 MG, 2X/DAY, AFTER BREAKFAST AND AFTER DINNER
  6. TEPRENONE [Concomitant]
     Active Substance: TEPRENONE
     Indication: Prophylaxis
     Dosage: 50 MG, 2X/DAY, AFTER BREAKFAST AND AFTER DINNER
  7. SULFAMETHOXAZOLE\TRIMETHOPRIM [Concomitant]
     Active Substance: SULFAMETHOXAZOLE\TRIMETHOPRIM
     Indication: Infection prophylaxis
     Dosage: 0.5 DF,1X/DAY, AFTER BREAK FAST, 2X/WEEK, MONDAY AND THURSDAY

REACTIONS (3)
  - Cytokine release syndrome [Recovered/Resolved]
  - Liver disorder [Recovered/Resolved]
  - Off label use [Unknown]

NARRATIVE: CASE EVENT DATE: 20250314
